FAERS Safety Report 24052948 (Version 4)
Quarter: 2024Q3

REPORT INFORMATION
  Report Type: Spontaneous
  Country: JP (occurrence: JP)
  Receive Date: 20240705
  Receipt Date: 20240920
  Transmission Date: 20241016
  Serious: Yes (Hospitalization, Other)
  Sender: ADVANZ PHARMA
  Company Number: JP-ADVANZ PHARMA-202406005454

PATIENT

DRUGS (4)
  1. ZONISAMIDE [Suspect]
     Active Substance: ZONISAMIDE
     Indication: Parkinson^s disease
     Dosage: 25 MG, QD (TRERIEF ORODISPERSIBLE TABLET)
     Route: 048
     Dates: start: 20240328, end: 20240421
  2. ATORVASTATIN [Concomitant]
     Active Substance: ATORVASTATIN
     Dosage: UNK
  3. CARBIDOPA\LEVODOPA [Concomitant]
     Active Substance: CARBIDOPA\LEVODOPA
     Dosage: UNK
     Dates: start: 20230329
  4. DOMPERIDONE [Concomitant]
     Active Substance: DOMPERIDONE
     Dosage: UNK
     Dates: start: 20230329

REACTIONS (3)
  - Pleural effusion [Recovered/Resolved]
  - Respiratory failure [Unknown]
  - Cytopenia [Recovered/Resolved]

NARRATIVE: CASE EVENT DATE: 20240420
